FAERS Safety Report 21590888 (Version 1)
Quarter: 2022Q4

REPORT INFORMATION
  Report Type: Spontaneous
  Country: US (occurrence: None)
  Receive Date: 20221111
  Receipt Date: 20221111
  Transmission Date: 20230113
  Serious: Yes (Death)
  Sender: FDA-Public Use
  Company Number: None

PATIENT
  Age: 68 Year
  Sex: Male
  Weight: 109.6 kg

DRUGS (1)
  1. TECARTUS [Suspect]
     Active Substance: BREXUCABTAGENE AUTOLEUCEL

REACTIONS (10)
  - Inappropriate antidiuretic hormone secretion [None]
  - Drug ineffective [None]
  - Lethargy [None]
  - Encephalopathy [None]
  - Hypotension [None]
  - Tumour lysis syndrome [None]
  - Blood potassium increased [None]
  - Haemofiltration [None]
  - Tachycardia [None]
  - Pulse absent [None]

NARRATIVE: CASE EVENT DATE: 20221104
